FAERS Safety Report 12446952 (Version 4)
Quarter: 2016Q3

REPORT INFORMATION
  Report Type: Spontaneous
  Country: TR (occurrence: TR)
  Receive Date: 20160608
  Receipt Date: 20160729
  Transmission Date: 20161109
  Serious: Yes (Hospitalization, Other)
  Sender: FDA-Public Use
  Company Number: TR-WATSON-2016-11323

PATIENT
  Age: 74 Year
  Sex: Female

DRUGS (4)
  1. LITHIUM CITRATE (UNKNOWN) [Interacting]
     Active Substance: LITHIUM CITRATE
     Indication: BIPOLAR DISORDER
     Dosage: 1800 MG, TOTAL
     Route: 048
  2. LEVODOPA-CARBIDOPA [Concomitant]
     Active Substance: CARBIDOPA\LEVODOPA
     Indication: PARKINSON^S DISEASE
     Dosage: UNK, BID
     Route: 065
  3. QUETIAPINE (UNKNOWN) [Suspect]
     Active Substance: QUETIAPINE
     Indication: BIPOLAR DISORDER
     Dosage: 400 MG, DAILY
     Route: 065
  4. VALSARTAN-HYDROCHLOROTHIAZIDE (UNKNOWN) [Interacting]
     Active Substance: HYDROCHLOROTHIAZIDE\VALSARTAN
     Indication: HYPERTENSION
     Dosage: UNK, DAILY
     Route: 065

REACTIONS (9)
  - Muscle contractions involuntary [Recovered/Resolved]
  - Vomiting [Recovered/Resolved]
  - Blood pressure increased [Unknown]
  - Antipsychotic drug level above therapeutic [Recovered/Resolved]
  - Unresponsive to stimuli [Recovered/Resolved]
  - Confusional state [Recovered/Resolved]
  - Nausea [Recovered/Resolved]
  - Muscle rigidity [Recovered/Resolved]
  - Drug interaction [Recovered/Resolved]
